FAERS Safety Report 8082020-1 (Version None)
Quarter: 2012Q1

REPORT INFORMATION
  Report Type: 
  Country: None (occurrence: None)
  Receive Date: 20120130
  Receipt Date: 20120120
  Transmission Date: 20120608
  Serious: Yes (Hospitalization, Other)
  Sender: FDA-Public Use
  Company Number: PHHY2012IT005641

PATIENT
  Sex: Female

DRUGS (8)
  1. CLARITHROMYCIN [Suspect]
     Dosage: UNK
     Route: 048
     Dates: start: 20111129, end: 20111212
  2. ACETAMINOPHEN AND CODEINE PHOSPHATE [Concomitant]
  3. ZOLPIDEM [Concomitant]
  4. NORVASC [Concomitant]
  5. PANIFUR [Concomitant]
  6. DULOXETINE HYDROCHLORIDE [Concomitant]
     Route: 048
  7. LASIX [Concomitant]
  8. COUMADIN [Concomitant]

REACTIONS (6)
  - DERMATITIS ALLERGIC [None]
  - RENAL FAILURE CHRONIC [None]
  - SKIN EXFOLIATION [None]
  - PRURITUS [None]
  - RASH [None]
  - DEHYDRATION [None]
